FAERS Safety Report 10249566 (Version 1)
Quarter: 2014Q2

REPORT INFORMATION
  Report Type: Spontaneous
  Country: US (occurrence: US)
  Receive Date: 20140620
  Receipt Date: 20140620
  Transmission Date: 20141212
  Serious: No
  Sender: FDA-Public Use
  Company Number: US-PFIZER INC-2014170282

PATIENT
  Age: 81 Year
  Sex: Female
  Weight: 99.77 kg

DRUGS (3)
  1. LYRICA [Suspect]
     Indication: DIABETIC NEUROPATHY
     Dosage: 200 MG, DAILY
     Dates: start: 2012
  2. LASIX [Concomitant]
     Dosage: UNK
  3. KLOR-CON [Concomitant]
     Dosage: 40 MG, DAILY

REACTIONS (1)
  - Muscle spasms [Recovered/Resolved]
